FAERS Safety Report 15374617 (Version 1)
Quarter: 2018Q3

REPORT INFORMATION
  Report Type: Spontaneous
  Country: SA (occurrence: SA)
  Receive Date: 20180912
  Receipt Date: 20180912
  Transmission Date: 20181010
  Serious: Yes (Hospitalization)
  Sender: FDA-Public Use
  Company Number: SA-TEVA-03-06-0780

PATIENT
  Age: 11 Month
  Sex: Male

DRUGS (4)
  1. THEOPHYLLINE [Concomitant]
     Active Substance: THEOPHYLLINE ANHYDROUS
     Dosage: 3MG/KG TID
     Route: 048
  2. ALDACTONE [Concomitant]
     Active Substance: SPIRONOLACTONE
     Dosage: 7MG BID
     Route: 048
  3. FUROSEMIDE. [Concomitant]
     Active Substance: FUROSEMIDE
     Dosage: 7MG Q12HR
  4. CAPTOPRIL. [Suspect]
     Active Substance: CAPTOPRIL
     Indication: ATRIOVENTRICULAR BLOCK COMPLETE
     Dosage: 1MG Q8HR
     Route: 048

REACTIONS (1)
  - Toxic epidermal necrolysis [Recovered/Resolved]
